FAERS Safety Report 9008391 (Version 4)
Quarter: 2014Q1

REPORT INFORMATION
  Report Type: Report from Study
  Country: US (occurrence: US)
  Receive Date: 20130111
  Receipt Date: 20140116
  Transmission Date: 20141002
  Serious: Yes (Other)
  Sender: FDA-Public Use
  Company Number: US-UCBSA-035774

PATIENT
  Sex: Male

DRUGS (6)
  1. KEPPRA [Suspect]
     Indication: EPILEPSY
     Dosage: 1500 MG
     Route: 064
     Dates: start: 20110310, end: 20111118
  2. PRENATAL VITAMINS [Concomitant]
     Indication: PREGNANCY
     Dosage: 1 CAPSULE PER DAY
     Route: 064
  3. FOLIC ACID [Concomitant]
     Indication: PREGNANCY
     Route: 060
  4. ACETAMINOPHEN [Concomitant]
     Indication: HEADACHE
     Dosage: AS NEEDED
     Route: 064
  5. ACETAMINOPHEN [Concomitant]
     Indication: ABDOMINAL PAIN
     Dosage: AS NEEDED
     Route: 064
  6. LAMOTRIGINE [Concomitant]
     Indication: EPILEPSY
     Route: 064

REACTIONS (3)
  - Dacryostenosis congenital [Recovered/Resolved]
  - Head circumference [Unknown]
  - Foetal exposure during pregnancy [Recovered/Resolved]
